FAERS Safety Report 21063956 (Version 1)
Quarter: 2022Q3

REPORT INFORMATION
  Report Type: Spontaneous
  Country: US (occurrence: US)
  Receive Date: 20220711
  Receipt Date: 20220711
  Transmission Date: 20221027
  Serious: Yes (Other)
  Sender: FDA-Public Use
  Company Number: US-NOVARTISTESTPH-NVSC2021US308605

PATIENT
  Sex: Male

DRUGS (10)
  1. BICALUTAMIDE [Suspect]
     Active Substance: BICALUTAMIDE
     Indication: Hormone-refractory prostate cancer
     Dosage: UNK
     Route: 065
     Dates: start: 20071009, end: 20071109
  2. BICALUTAMIDE [Suspect]
     Active Substance: BICALUTAMIDE
     Dosage: UNK
     Route: 065
     Dates: start: 20081217, end: 20090916
  3. NILANDRON [Suspect]
     Active Substance: NILUTAMIDE
     Indication: Hormone-refractory prostate cancer
     Dosage: UNK
     Route: 065
     Dates: start: 20100319, end: 20101210
  4. SIPULEUCEL-T [Suspect]
     Active Substance: SIPULEUCEL-T
     Indication: Hormone-refractory prostate cancer
     Dosage: UNK
     Route: 065
     Dates: end: 201107
  5. ABIRATERONE [Suspect]
     Active Substance: ABIRATERONE
     Indication: Hormone-refractory prostate cancer
     Dosage: UNK
     Route: 065
     Dates: start: 20110824, end: 20190514
  6. PREDNISONE [Suspect]
     Active Substance: PREDNISONE
     Indication: Hormone-refractory prostate cancer
     Dosage: UNK
     Route: 065
     Dates: start: 20110824, end: 20190514
  7. ENZALUTAMIDE [Suspect]
     Active Substance: ENZALUTAMIDE
     Indication: Hormone-refractory prostate cancer
     Dosage: UNK
     Route: 065
     Dates: start: 20190525, end: 20201123
  8. DENOSUMAB [Suspect]
     Active Substance: DENOSUMAB
     Indication: Hormone-refractory prostate cancer
     Dosage: CONSIDERED MAINTENANCE THERAPY FOR SKELETAL-RELATED EVENTS
     Route: 065
     Dates: start: 20201201
  9. RADIUM [Suspect]
     Active Substance: RADIUM
     Indication: Hormone-refractory prostate cancer
     Dosage: 223 (6 CYCLES)
     Route: 065
     Dates: start: 20210108, end: 20210528
  10. GOSERELIN [Concomitant]
     Active Substance: GOSERELIN
     Indication: Androgen therapy
     Dosage: UNK
     Route: 065
     Dates: start: 20071009

REACTIONS (3)
  - Prostate cancer metastatic [Unknown]
  - Malignant neoplasm progression [Unknown]
  - Metastases to bone [Unknown]
